FAERS Safety Report 20769493 (Version 2)
Quarter: 2022Q2

REPORT INFORMATION
  Report Type: Spontaneous
  Country: NL (occurrence: NL)
  Receive Date: 20220429
  Receipt Date: 20220509
  Transmission Date: 20220721
  Serious: Yes (Life-Threatening, Hospitalization, Other)
  Sender: FDA-Public Use
  Company Number: NL-PURDUE-USA-2022-0293408

PATIENT
  Age: 68 Year
  Sex: Male

DRUGS (2)
  1. OXYCODONE HYDROCHLORIDE [Suspect]
     Active Substance: OXYCODONE HYDROCHLORIDE
     Indication: Back pain
     Dosage: 10 MG, UNK (90 OXYCODONE 10 MG TABLETS NEXT TO HIS BED)
     Route: 048
  2. METHYLNALTREXONE [Concomitant]
     Active Substance: METHYLNALTREXONE
     Indication: Constipation prophylaxis
     Dosage: UNKNOWN
     Route: 065

REACTIONS (6)
  - Bezoar [Recovering/Resolving]
  - Toxicity to various agents [Recovering/Resolving]
  - Respiratory failure [Recovering/Resolving]
  - Depressed level of consciousness [Recovering/Resolving]
  - Hypoventilation [Recovering/Resolving]
  - Unresponsive to stimuli [Recovering/Resolving]
